FAERS Safety Report 8114329-7 (Version None)
Quarter: 2012Q1

REPORT INFORMATION
  Report Type: 
  Country: None (occurrence: None)
  Receive Date: 20120206
  Receipt Date: 20120126
  Transmission Date: 20120608
  Serious: No
  Sender: FDA-Public Use
  Company Number: US-BIOGENIDEC-2011BI048262

PATIENT
  Age: 53 Year
  Sex: Female

DRUGS (6)
  1. TYSABRI [Suspect]
     Indication: MULTIPLE SCLEROSIS
     Route: 042
     Dates: start: 20070209
  2. CYTOXAN [Concomitant]
     Indication: MULTIPLE SCLEROSIS
  3. COPAXONE [Concomitant]
     Indication: MULTIPLE SCLEROSIS
  4. SOTALOL HCL [Concomitant]
     Indication: HYPERTENSION
     Dates: start: 20050923
  5. COUMADIN [Concomitant]
     Indication: ATRIAL FIBRILLATION
     Dates: start: 19900101, end: 20101129
  6. ASPIRIN [Concomitant]
     Indication: ATRIAL FIBRILLATION
     Dates: start: 20101206

REACTIONS (5)
  - TREMOR [None]
  - OPTIC NEURITIS [None]
  - ARTHRITIS [None]
  - PERONEAL NERVE PALSY [None]
  - HYPERTENSION [None]
